FAERS Safety Report 19419313 (Version 2)
Quarter: 2021Q2

REPORT INFORMATION
  Report Type: Spontaneous
  Country: IN (occurrence: IN)
  Receive Date: 20210615
  Receipt Date: 20210624
  Transmission Date: 20210717
  Serious: No
  Sender: FDA-Public Use
  Company Number: IN-PFIZER INC-2021677798

PATIENT
  Age: 80 Year
  Sex: Female

DRUGS (1)
  1. PALBACE [Suspect]
     Active Substance: PALBOCICLIB
     Dosage: 125 MG
     Route: 048
     Dates: start: 20210227, end: 20210526

REACTIONS (3)
  - Constipation [Unknown]
  - Taste disorder [Unknown]
  - Hyperchlorhydria [Unknown]
